FAERS Safety Report 22654189 (Version 1)
Quarter: 2023Q2

REPORT INFORMATION
  Report Type: Spontaneous
  Country: FR (occurrence: FR)
  Receive Date: 20230629
  Receipt Date: 20230629
  Transmission Date: 20230722
  Serious: Yes (Hospitalization, Other)
  Sender: FDA-Public Use
  Company Number: None

PATIENT
  Age: 76 Year
  Sex: Male

DRUGS (2)
  1. PLAVIX [Suspect]
     Active Substance: CLOPIDOGREL BISULFATE
     Indication: Cardiac disorder
     Dosage: 75 MG, QD
     Route: 048
     Dates: end: 20230528
  2. APIXABAN [Suspect]
     Active Substance: APIXABAN
     Indication: Cardiac disorder
     Dosage: 5 MG, Q12H
     Route: 048
     Dates: end: 20230528

REACTIONS (2)
  - Haemoperitoneum [Recovering/Resolving]
  - Shock haemorrhagic [Recovered/Resolved]

NARRATIVE: CASE EVENT DATE: 20230528
